FAERS Safety Report 9056184 (Version 2)
Quarter: 2013Q1

REPORT INFORMATION
  Report Type: Spontaneous
  Country: IT (occurrence: IT)
  Receive Date: 20130205
  Receipt Date: 20130318
  Transmission Date: 20140127
  Serious: Yes (Hospitalization)
  Sender: FDA-Public Use
  Company Number: IT-PFIZER INC-2013041512

PATIENT
  Age: 45 Year
  Sex: Male

DRUGS (2)
  1. XANAX [Suspect]
     Indication: INSOMNIA
     Dosage: 20 DF, SINGLE
     Route: 048
     Dates: start: 20130117, end: 20130117
  2. TEGRETOL [Concomitant]
     Dosage: 3 DF, UNK
     Route: 048

REACTIONS (3)
  - Overdose [Recovering/Resolving]
  - Psychomotor skills impaired [Recovering/Resolving]
  - Off label use [Unknown]
